FAERS Safety Report 14585723 (Version 2)
Quarter: 2018Q1

REPORT INFORMATION
  Report Type: Spontaneous
  Country: JP (occurrence: JP)
  Receive Date: 20180301
  Receipt Date: 20180313
  Transmission Date: 20180509
  Serious: Yes (Death, Hospitalization, Other)
  Sender: FDA-Public Use
  Company Number: JP-BRISTOL-MYERS SQUIBB COMPANY-BMS-2018-008810

PATIENT
  Age: 84 Year
  Sex: Male

DRUGS (9)
  1. RABEPRAZOLE NA [Concomitant]
     Active Substance: RABEPRAZOLE SODIUM
     Indication: CEREBRAL HAEMORRHAGE
     Dosage: 10 MG, QD
     Route: 048
  2. NESINA [Concomitant]
     Active Substance: ALOGLIPTIN BENZOATE
     Indication: CEREBRAL HAEMORRHAGE
     Dosage: 25 MG, QD
     Route: 048
  3. ELIQUIS [Suspect]
     Active Substance: APIXABAN
     Indication: CEREBROVASCULAR ACCIDENT PROPHYLAXIS
     Dosage: 2.5 MG, BID
     Route: 048
     Dates: end: 20180124
  4. METFORMIN HYDROCHLORIDE. [Concomitant]
     Active Substance: METFORMIN HYDROCHLORIDE
     Indication: CEREBRAL HAEMORRHAGE
     Dosage: 250 MG, BID
     Route: 048
  5. MOSAPRIDE CITRATE [Concomitant]
     Active Substance: MOSAPRIDE CITRATE
     Indication: CEREBRAL HAEMORRHAGE
     Dosage: 5 MG, TID
     Route: 048
  6. SALOBEL [Concomitant]
     Active Substance: ALLOPURINOL
     Indication: CEREBRAL HAEMORRHAGE
     Dosage: 100 MG, QD
     Route: 048
  7. MAGNESIUM OXIDE. [Concomitant]
     Active Substance: MAGNESIUM OXIDE
     Indication: CEREBRAL HAEMORRHAGE
     Dosage: 500 MG, TID
     Route: 048
  8. PROPRANOLOL HYDROCHLORIDE. [Concomitant]
     Active Substance: PROPRANOLOL HYDROCHLORIDE
     Indication: CEREBRAL HAEMORRHAGE
     Dosage: 10 MG, QD
     Route: 048
  9. EPERISONE HYDROCHLORIDE [Concomitant]
     Active Substance: EPERISONE HYDROCHLORIDE
     Indication: CEREBRAL HAEMORRHAGE
     Dosage: 50 MG, TID
     Route: 048

REACTIONS (1)
  - Cerebral haemorrhage [Fatal]

NARRATIVE: CASE EVENT DATE: 20180124
